FAERS Safety Report 5060647-9 (Version None)
Quarter: 2006Q3

REPORT INFORMATION
  Report Type: 
  Country: None (occurrence: None)
  Receive Date: 20060725
  Receipt Date: 20060227
  Transmission Date: 20061208
  Serious: Yes (Other)
  Sender: FDA-Public Use
  Company Number: PHNU2006DE01208

PATIENT
  Sex: Female

DRUGS (4)
  1. TEGRETOL [Suspect]
     Indication: GRAND MAL CONVULSION
     Dosage: 400 MG/DAY
     Dates: start: 19760101, end: 19910101
  2. TEGRETOL [Suspect]
     Dosage: 800 MG/DAY
     Dates: start: 19910101, end: 20060101
  3. CONTRACEPTIVES UNS [Concomitant]
  4. KEPPRA [Concomitant]
     Dosage: 3000 MG/DAY
     Dates: start: 20060101, end: 20060301

REACTIONS (15)
  - ADRENOCORTICAL INSUFFICIENCY ACUTE [None]
  - AURA [None]
  - BLOOD CORTICOTROPHIN ABNORMAL [None]
  - BLOOD SODIUM DECREASED [None]
  - DEHYDROEPIANDROSTERONE DECREASED [None]
  - DEPRESSION [None]
  - DYSPNOEA [None]
  - EYELID FUNCTION DISORDER [None]
  - GAMMA-GLUTAMYLTRANSFERASE INCREASED [None]
  - HYPONATRAEMIA [None]
  - HYPOTENSION [None]
  - IRON DEFICIENCY [None]
  - PARTIAL SEIZURES [None]
  - PETIT MAL EPILEPSY [None]
  - SOMNOLENCE [None]
